FAERS Safety Report 21876774 (Version 2)
Quarter: 2023Q4

REPORT INFORMATION
  Report Type: Report from Study
  Country: CA (occurrence: CA)
  Receive Date: 20230118
  Receipt Date: 20231228
  Transmission Date: 20240109
  Serious: Yes (Life-Threatening, Hospitalization, Other)
  Sender: FDA-Public Use
  Company Number: CA-JNJFOC-20230124635

PATIENT
  Age: 64 Year
  Sex: Female
  Weight: 90 kg

DRUGS (1)
  1. SIMPONI [Suspect]
     Active Substance: GOLIMUMAB
     Indication: Ankylosing spondylitis
     Route: 058
     Dates: start: 20100406

REACTIONS (13)
  - Aortic valve replacement [Recovered/Resolved with Sequelae]
  - Mitral commissurotomy [Not Recovered/Not Resolved]
  - Laparotomy [Unknown]
  - Monoplegia [Not Recovered/Not Resolved]
  - Medical induction of coma [Unknown]
  - Anaemia [Unknown]
  - Internal haemorrhage [Not Recovered/Not Resolved]
  - Procedural haemorrhage [Not Recovered/Not Resolved]
  - Post procedural cardiac valve avulsion [Unknown]
  - Intestinal infarction [Not Recovered/Not Resolved]
  - Ileostomy closure [Recovered/Resolved]
  - Cardiac murmur [Not Recovered/Not Resolved]
  - Alopecia [Not Recovered/Not Resolved]

NARRATIVE: CASE EVENT DATE: 20220101
